FAERS Safety Report 13863102 (Version 3)
Quarter: 2020Q1

REPORT INFORMATION
  Report Type: Spontaneous
  Country: US (occurrence: US)
  Receive Date: 20170814
  Receipt Date: 20200320
  Transmission Date: 20200409
  Serious: Yes (Other)
  Sender: FDA-Public Use
  Company Number: US-BRISTOL-MYERS SQUIBB COMPANY-BMS-2017-071007

PATIENT
  Sex: Female

DRUGS (1)
  1. YERVOY [Suspect]
     Active Substance: IPILIMUMAB
     Indication: VULVAL CANCER
     Dosage: 800 MG, EVERY 3 WEEKS
     Route: 042
     Dates: start: 20170713

REACTIONS (3)
  - Intentional product use issue [Unknown]
  - Adverse reaction [Unknown]
  - Malignant neoplasm progression [Unknown]
